FAERS Safety Report 5786134-8 (Version None)
Quarter: 2008Q2

REPORT INFORMATION
  Report Type: 
  Country: None (occurrence: None)
  Receive Date: 20080624
  Receipt Date: 20080605
  Transmission Date: 20081010
  Serious: Yes (Other)
  Sender: FDA-Public Use
  Company Number: US-ELI_LILLY_AND_COMPANY-US200803005668

PATIENT
  Age: 49 Year
  Sex: Male

DRUGS (5)
  1. CYMBALTA [Suspect]
     Dosage: 60 MG, DAILY (1/D)
     Dates: start: 20050101
  2. WARFARIN SODIUM [Concomitant]
     Indication: ANTICOAGULANT THERAPY
  3. TOPAMAX [Concomitant]
     Indication: MIGRAINE
  4. DIAZEPAM [Concomitant]
  5. DARVOCET [Concomitant]

REACTIONS (10)
  - ACCOMMODATION DISORDER [None]
  - ACTIVITIES OF DAILY LIVING IMPAIRED [None]
  - COLOUR BLINDNESS [None]
  - MIGRAINE [None]
  - OPTIC ATROPHY [None]
  - PAIN [None]
  - PHOTOPHOBIA [None]
  - ROAD TRAFFIC ACCIDENT [None]
  - VISION BLURRED [None]
  - VISUAL ACUITY REDUCED [None]
